FAERS Safety Report 8814976 (Version 1)
Quarter: 2012Q4

REPORT INFORMATION
  Report Type: 
  Country: DE (occurrence: DE)
  Receive Date: 20120928
  Receipt Date: 20120928
  Transmission Date: 20130627
  Serious: Yes (Other)
  Sender: FDA-Public Use
  Company Number: PHHY2012DE083211

PATIENT
  Sex: Female

DRUGS (1)
  1. TOBI PODHALER [Suspect]

REACTIONS (1)
  - Bronchospasm [Unknown]
